FAERS Safety Report 4314902-8 (Version None)
Quarter: 2004Q1

REPORT INFORMATION
  Report Type: 
  Country: None (occurrence: None)
  Receive Date: 20040310
  Receipt Date: 20040310
  Transmission Date: 20041129
  Serious: Yes (Other)
  Sender: FDA-Public Use
  Company Number: None

PATIENT
  Age: 46 Year
  Sex: Female
  Weight: 48.5349 kg

DRUGS (10)
  1. FORTEO [Suspect]
     Indication: OSTEOPOROSIS
     Dosage: 20 MCG DAY SUBCUTANEOUS
     Route: 058
     Dates: start: 20040105, end: 20040205
  2. AMBIEN [Concomitant]
  3. ZELNORM [Concomitant]
  4. AVINZA [Concomitant]
  5. FLURAZEPAM [Concomitant]
  6. LIDODERM [Concomitant]
  7. MIDRIN [Concomitant]
  8. ACIPHEX [Concomitant]
  9. HEMOCYTE [Concomitant]
  10. OXY IR [Concomitant]

REACTIONS (2)
  - URINE ODOUR ABNORMAL [None]
  - WHITE BLOOD CELLS URINE POSITIVE [None]
